FAERS Safety Report 7148149-7 (Version None)
Quarter: 2010Q4

REPORT INFORMATION
  Report Type: 
  Country: None (occurrence: None)
  Receive Date: 20101209
  Receipt Date: 20101130
  Transmission Date: 20110411
  Serious: Yes (Hospitalization)
  Sender: FDA-Public Use
  Company Number: US-JNJFOC-20101202384

PATIENT
  Sex: Male
  Weight: 14.6 kg

DRUGS (7)
  1. INFLIXIMAB, RECOMBINANT [Suspect]
     Indication: INFLAMMATORY BOWEL DISEASE
     Route: 042
  2. INFLIXIMAB, RECOMBINANT [Suspect]
     Route: 042
  3. MESALAMINE [Concomitant]
  4. AZATHIOPRINE [Concomitant]
  5. PREVACID [Concomitant]
  6. MULTI-VITAMINS [Concomitant]
  7. ELECARE [Concomitant]

REACTIONS (1)
  - PYREXIA [None]
